FAERS Safety Report 9531839 (Version 3)
Quarter: 2013Q4

REPORT INFORMATION
  Report Type: Spontaneous
  Country: FR (occurrence: FR)
  Receive Date: 20130918
  Receipt Date: 20131003
  Transmission Date: 20140711
  Serious: Yes (Hospitalization)
  Sender: FDA-Public Use
  Company Number: FR-SANOFI-AVENTIS-2013SA039678

PATIENT
  Age: 90 Year
  Sex: Male

DRUGS (17)
  1. ZOLPIDEM [Suspect]
     Indication: PRODUCT USED FOR UNKNOWN INDICATION
     Dosage: DOSE:1 UNIT(S)
     Route: 048
     Dates: start: 20130204, end: 20130225
  2. DEPAKINE [Suspect]
     Indication: PRODUCT USED FOR UNKNOWN INDICATION
     Route: 048
     Dates: start: 20130220, end: 20130223
  3. FUMAFER [Suspect]
     Indication: PRODUCT USED FOR UNKNOWN INDICATION
     Dosage: DOSE:1 UNIT(S)
     Route: 048
     Dates: start: 20130204, end: 20130225
  4. CLAMOXYL [Suspect]
     Indication: PRODUCT USED FOR UNKNOWN INDICATION
     Route: 048
     Dates: start: 20130204, end: 20130225
  5. DALACIN [Suspect]
     Indication: PRODUCT USED FOR UNKNOWN INDICATION
     Route: 048
     Dates: start: 20130205, end: 20130225
  6. OXYNORM [Suspect]
     Indication: PRODUCT USED FOR UNKNOWN INDICATION
     Route: 048
     Dates: start: 20130207, end: 20130225
  7. JOSIR [Concomitant]
     Route: 048
     Dates: end: 20130226
  8. XANAX [Concomitant]
     Indication: ANXIETY
     Route: 048
  9. CASODEX [Concomitant]
     Route: 048
  10. LASILIX [Concomitant]
     Dosage: DOSE:1 UNIT(S)
     Route: 048
     Dates: end: 20130307
  11. CARDENSIEL [Concomitant]
     Dosage: DOSE:1 UNIT(S)
     Route: 048
     Dates: end: 20130226
  12. DIFFU K [Concomitant]
     Route: 048
     Dates: end: 20130307
  13. LYRICA [Concomitant]
     Route: 048
     Dates: end: 20130307
  14. INEXIUM [Concomitant]
     Dosage: DOSE:1 UNIT(S)
     Route: 048
     Dates: end: 20130307
  15. PREVISCAN [Concomitant]
     Route: 048
     Dates: end: 20130226
  16. RISPERDAL [Concomitant]
     Dosage: DOSE:3 UNIT(S)
     Route: 048
     Dates: end: 20130307
  17. FERROUS SULFATE [Concomitant]
     Dosage: DOSE:1 UNIT(S)
     Route: 048
     Dates: end: 20130225

REACTIONS (2)
  - Rash maculo-papular [Not Recovered/Not Resolved]
  - Skin exfoliation [Not Recovered/Not Resolved]
